FAERS Safety Report 10878896 (Version 2)
Quarter: 2015Q1

REPORT INFORMATION
  Report Type: Spontaneous
  Country: US (occurrence: None)
  Receive Date: 20150225
  Receipt Date: 20150304
  Transmission Date: 20150721
  Serious: Yes (Hospitalization)
  Sender: FDA-Public Use
  Company Number: HYP201502-000015

PATIENT
  Age: 30 Year
  Sex: Female

DRUGS (13)
  1. LAMICTAL [Concomitant]
     Active Substance: LAMOTRIGINE
  2. CONCERTA (METHYLPHENIDATE HYDROCHLORIDE) [Concomitant]
  3. ALBUTEROL (SALBUTAMOL) [Concomitant]
     Active Substance: ALBUTEROL
  4. RISPERDAL [Concomitant]
     Active Substance: RISPERIDONE
  5. SODIUM BICARBONATE. [Concomitant]
     Active Substance: SODIUM BICARBONATE
  6. POTASSIUM CHLORIDE. [Concomitant]
     Active Substance: POTASSIUM CHLORIDE
  7. AZELASTINE [Concomitant]
     Active Substance: AZELASTINE
  8. RITALIN (METHYLPHENIDATE HYDROCHLORIDE) [Concomitant]
     Active Substance: METHYLPHENIDATE HYDROCHLORIDE
  9. FLONASE (MOMETASONE FUROATE) [Concomitant]
  10. RAVICTI [Suspect]
     Active Substance: GLYCEROL PHENYLBUTYRATE
     Indication: UREA CYCLE ENZYME DEFICIENCY
     Dates: start: 20140611
  11. TOPAMAX [Concomitant]
     Active Substance: TOPIRAMATE
  12. CLONAZEPAM. [Concomitant]
     Active Substance: CLONAZEPAM
  13. ARGININE [Concomitant]
     Active Substance: ARGININE

REACTIONS (7)
  - Diarrhoea [None]
  - Vomiting [None]
  - Hypophagia [None]
  - Hypokalaemia [None]
  - Renal impairment [None]
  - Renal tubular acidosis [None]
  - Metabolic acidosis [None]

NARRATIVE: CASE EVENT DATE: 201501
